FAERS Safety Report 20560922 (Version 2)
Quarter: 2023Q1

REPORT INFORMATION
  Report Type: Other
  Country: US (occurrence: None)
  Receive Date: 20220307
  Receipt Date: 20230331
  Transmission Date: 20230417
  Serious: Yes (Other)
  Sender: FDA-Public Use
  Company Number: US-ROCHE-3035308

PATIENT
  Age: 57 Year
  Sex: Female
  Weight: 76.272 kg

DRUGS (7)
  1. OCREVUS [Suspect]
     Active Substance: OCRELIZUMAB
     Indication: Primary progressive multiple sclerosis
     Route: 042
  2. OCREVUS [Suspect]
     Active Substance: OCRELIZUMAB
     Indication: Relapsing multiple sclerosis
  3. METOPROLOL [Concomitant]
     Active Substance: METOPROLOL
  4. GABAPENTIN [Concomitant]
     Active Substance: GABAPENTIN
  5. EFFEXOR [Concomitant]
     Active Substance: VENLAFAXINE HYDROCHLORIDE
  6. ATORVASTATIN [Concomitant]
     Active Substance: ATORVASTATIN
  7. XANAX [Concomitant]
     Active Substance: ALPRAZOLAM

REACTIONS (11)
  - COVID-19 pneumonia [Recovered/Resolved]
  - Headache [Recovered/Resolved]
  - Nausea [Recovered/Resolved]
  - Blood pressure increased [Recovered/Resolved]
  - Gait disturbance [Recovered/Resolved]
  - Vision blurred [Recovered/Resolved]
  - Bronchitis [Recovered/Resolved]
  - Pain [Recovered/Resolved]
  - Respiratory disorder [Recovered/Resolved]
  - Anxiety [Not Recovered/Not Resolved]
  - Thrombosis [Unknown]

NARRATIVE: CASE EVENT DATE: 20210101
